FAERS Safety Report 6211261-0 (Version None)
Quarter: 2009Q2

REPORT INFORMATION
  Report Type: 
  Country: None (occurrence: None)
  Receive Date: 20090528
  Receipt Date: 20090513
  Transmission Date: 20091009
  Serious: Yes (Hospitalization, Other)
  Sender: FDA-Public Use
  Company Number: 2009S1008521

PATIENT
  Age: 86 Year
  Sex: Male
  Weight: 80 kg

DRUGS (10)
  1. AMISULPRIDE (AMISULPRIDE) (50 MG) [Suspect]
     Indication: BIPOLAR I DISORDER
     Dosage: 50 MG; TWICE A DAY; ORAL
     Route: 048
     Dates: start: 20090427, end: 20090506
  2. WARFARIN SODIUM [Suspect]
     Indication: DRUG USE FOR UNKNOWN INDICATION
     Dates: start: 20081106
  3. ATENOLOL [Concomitant]
  4. BETAMETHASONE W/FUSIDIC ACID [Concomitant]
  5. CALCIUM CARBONATE W/COLECALCIFEROL [Concomitant]
  6. DIETHYL-STILBESTROL TAB [Concomitant]
  7. GOSERELIN [Concomitant]
  8. MICRALAX [Concomitant]
  9. MIRTAZAPINE [Concomitant]
  10. CLARITHROMYCIN [Concomitant]

REACTIONS (2)
  - DRUG INTERACTION [None]
  - INTERNATIONAL NORMALISED RATIO INCREASED [None]
